FAERS Safety Report 14702642 (Version 2)
Quarter: 2018Q2

REPORT INFORMATION
  Report Type: Spontaneous
  Country: US (occurrence: US)
  Receive Date: 20180402
  Receipt Date: 20180518
  Transmission Date: 20180711
  Serious: Yes (Hospitalization, Other)
  Sender: FDA-Public Use
  Company Number: US-AMGEN-USASP2018042318

PATIENT
  Age: 72 Year
  Sex: Female

DRUGS (2)
  1. ARANESP [Suspect]
     Active Substance: DARBEPOETIN ALFA
     Indication: END STAGE RENAL DISEASE
     Dosage: 25 MUG, QWK
     Route: 065
     Dates: start: 2017
  2. ARANESP [Suspect]
     Active Substance: DARBEPOETIN ALFA
     Dosage: 100 MUG, QWK
     Route: 065

REACTIONS (1)
  - Haemoglobin decreased [Unknown]

NARRATIVE: CASE EVENT DATE: 201711
